FAERS Safety Report 9049244 (Version 1)
Quarter: 2013Q1

REPORT INFORMATION
  Report Type: Spontaneous
  Country: GB (occurrence: GB)
  Receive Date: 20130205
  Receipt Date: 20130205
  Transmission Date: 20140127
  Serious: Yes (Hospitalization)
  Sender: FDA-Public Use
  Company Number: GB-ROCHE-1187437

PATIENT
  Age: 47 Year
  Sex: Female

DRUGS (10)
  1. MABTHERA [Suspect]
     Indication: RHEUMATOID ARTHRITIS
     Route: 042
     Dates: start: 20120629, end: 20120713
  2. AMITRIPTYLINE [Concomitant]
  3. CO-CODAMOL [Concomitant]
  4. FERROUS FUMARATE [Concomitant]
  5. FOLIC ACID [Concomitant]
  6. NAPROXEN [Concomitant]
  7. PREDNISOLONE [Concomitant]
  8. SALBUTAMOL [Concomitant]
  9. SULFASALAZINE [Concomitant]
  10. TRAMADOL [Concomitant]

REACTIONS (1)
  - Congestive cardiomyopathy [Not Recovered/Not Resolved]
